FAERS Safety Report 25391439 (Version 1)
Quarter: 2025Q2

REPORT INFORMATION
  Report Type: Spontaneous
  Country: CN (occurrence: CN)
  Receive Date: 20250603
  Receipt Date: 20250603
  Transmission Date: 20250716
  Serious: Yes (Hospitalization)
  Sender: ELI LILLY AND COMPANY
  Company Number: CN-ELI_LILLY_AND_COMPANY-CN202505023571

PATIENT
  Age: 56 Year
  Sex: Female
  Weight: 47 kg

DRUGS (1)
  1. ABEMACICLIB [Suspect]
     Active Substance: ABEMACICLIB
     Indication: Breast cancer
     Route: 048
     Dates: start: 20250501, end: 20250507

REACTIONS (2)
  - Myelosuppression [Unknown]
  - Off label use [Unknown]

NARRATIVE: CASE EVENT DATE: 20250501
